FAERS Safety Report 8156673-3 (Version None)
Quarter: 2012Q1

REPORT INFORMATION
  Report Type: 
  Country: None (occurrence: None)
  Receive Date: 20120216
  Receipt Date: 20120131
  Transmission Date: 20120608
  Serious: Yes (Other)
  Sender: FDA-Public Use
  Company Number: 20110750

PATIENT
  Age: 77 Year

DRUGS (4)
  1. CEFUROXIME [Suspect]
     Indication: PRODUCT USED FOR UNKNOWN INDICATION
     Dosage: UNKNOWN
     Dates: start: 20111221, end: 20111221
  2. BETADINE [Concomitant]
  3. EPINEPHRINE [Suspect]
     Indication: PRODUCT USED FOR UNKNOWN INDICATION
     Dosage: DILUTED IN BSS UNKNOWN
     Dates: start: 20111221, end: 20111221
  4. BSS [Suspect]
     Dosage: UNKNOWN
     Dates: start: 20111221, end: 20111221

REACTIONS (3)
  - OFF LABEL USE [None]
  - EYE INFECTION [None]
  - STREPTOCOCCAL INFECTION [None]
